FAERS Safety Report 4609802-X (Version None)
Quarter: 2005Q1

REPORT INFORMATION
  Report Type: 
  Country: None (occurrence: None)
  Receive Date: 20050314
  Receipt Date: 20050304
  Transmission Date: 20050727
  Serious: Yes (Hospitalization, Other)
  Sender: FDA-Public Use
  Company Number: GBWYE486108MAR05

PATIENT
  Age: 30 Year
  Sex: Female

DRUGS (4)
  1. TAZOCIN (PIPERACILLIN/TAZOBACTAM, INJECTION) [Suspect]
     Indication: CONDITION AGGRAVATED
     Dosage: 6.75 G INTRAVENOUS
     Route: 042
     Dates: start: 20050117, end: 20050120
  2. TAZOCIN (PIPERACILLIN/TAZOBACTAM, INJECTION) [Suspect]
     Indication: CYSTIC FIBROSIS
     Dosage: 6.75 G INTRAVENOUS
     Route: 042
     Dates: start: 20050117, end: 20050120
  3. TOBRAMYCIN [Suspect]
     Indication: CONDITION AGGRAVATED
     Dosage: 140MG INTRAVENOUS
     Route: 042
     Dates: start: 20050117, end: 20050120
  4. TOBRAMYCIN [Suspect]
     Indication: CYSTIC FIBROSIS
     Dosage: 140MG INTRAVENOUS
     Route: 042
     Dates: start: 20050117, end: 20050120

REACTIONS (1)
  - INFLUENZA LIKE ILLNESS [None]
